FAERS Safety Report 7553541-2 (Version None)
Quarter: 2011Q2

REPORT INFORMATION
  Report Type: 
  Country: None (occurrence: None)
  Receive Date: 20110609
  Receipt Date: 20110526
  Transmission Date: 20111010
  Serious: Yes (Hospitalization)
  Sender: FDA-Public Use
  Company Number: 935586

PATIENT
  Age: 12 Year
  Sex: Female

DRUGS (4)
  1. CISPLATIN [Suspect]
     Indication: BONE SARCOMA
     Dates: start: 20080601
  2. IFOSFAMIDE [Suspect]
     Indication: BONE SARCOMA
     Dates: start: 20080101
  3. METHOTREXATE [Suspect]
     Indication: BONE SARCOMA
     Dosage: 12 G/MG
     Dates: start: 20080601
  4. DOXORUBICIN HCL [Suspect]
     Indication: BONE SARCOMA
     Dates: start: 20080601

REACTIONS (3)
  - GREENSTICK FRACTURE [None]
  - TIBIA FRACTURE [None]
  - OSTEOPOROTIC FRACTURE [None]
